APPROVED DRUG PRODUCT: FLUTICASONE PROPIONATE
Active Ingredient: FLUTICASONE PROPIONATE
Strength: 0.05MG/SPRAY
Dosage Form/Route: SPRAY, METERED;NASAL
Application: A208150 | Product #001
Applicant: APOTEX INC
Approved: Feb 29, 2016 | RLD: No | RS: No | Type: OTC